FAERS Safety Report 10162450 (Version 1)
Quarter: 2014Q2

REPORT INFORMATION
  Report Type: Report from Study
  Country: US (occurrence: US)
  Receive Date: 20140509
  Receipt Date: 20140509
  Transmission Date: 20141212
  Serious: Yes (Hospitalization)
  Sender: FDA-Public Use
  Company Number: PHHO2014US006463

PATIENT
  Age: 47 Year
  Sex: Male
  Weight: 114.3 kg

DRUGS (4)
  1. ACZ885 [Suspect]
     Indication: CARDIOVASCULAR EVENT PROPHYLAXIS
     Dosage: 50 MG, B
     Route: 058
     Dates: start: 20130923
  2. LISINOPRIL [Concomitant]
     Dosage: 40 MG, BID
     Route: 048
  3. TOPROL XL [Concomitant]
     Dosage: 50 MG, QD
     Route: 048
  4. AMLODIPINE [Concomitant]
     Dosage: 5 MG, QD
     Route: 048

REACTIONS (1)
  - Syncope [Recovered/Resolved]
